FAERS Safety Report 11521867 (Version 1)
Quarter: 2015Q3

REPORT INFORMATION
  Report Type: Spontaneous
  Country: US (occurrence: US)
  Receive Date: 20150918
  Receipt Date: 20150918
  Transmission Date: 20151125
  Serious: Yes (Other)
  Sender: FDA-Public Use
  Company Number: US-ROCHE-749688

PATIENT
  Age: 55 Year
  Sex: Male
  Weight: 78 kg

DRUGS (4)
  1. RANITIDINE [Concomitant]
     Active Substance: RANITIDINE\RANITIDINE HYDROCHLORIDE
     Indication: DYSPEPSIA
     Route: 048
  2. BABY ASA [Concomitant]
     Active Substance: ASPIRIN
     Dosage: DRUG REPORTED AS BABY ASPIRIN; FREQUENCY: DAILY
     Route: 048
  3. RIBAVIRIN. [Suspect]
     Active Substance: RIBAVIRIN
     Indication: HEPATITIS C
     Route: 048
  4. PEGASYS [Suspect]
     Active Substance: PEGINTERFERON ALFA-2A
     Indication: HEPATITIS C
     Route: 058
     Dates: start: 20101001, end: 20101203

REACTIONS (2)
  - Hyperglycaemia [Recovering/Resolving]
  - Drug ineffective [Unknown]

NARRATIVE: CASE EVENT DATE: 20101201
